FAERS Safety Report 24384222 (Version 2)
Quarter: 2024Q4

REPORT INFORMATION
  Report Type: Spontaneous
  Country: US (occurrence: US)
  Receive Date: 20241001
  Receipt Date: 20241220
  Transmission Date: 20250114
  Serious: Yes (Other)
  Sender: JOHNSON AND JOHNSON
  Company Number: US-JNJFOC-20240969227

PATIENT
  Age: 4 Decade
  Sex: Female

DRUGS (2)
  1. STELARA [Suspect]
     Active Substance: USTEKINUMAB
     Indication: Colitis ulcerative
     Route: 058
     Dates: start: 20240319
  2. STELARA [Suspect]
     Active Substance: USTEKINUMAB
     Route: 058

REACTIONS (2)
  - Diarrhoea haemorrhagic [Not Recovered/Not Resolved]
  - Off label use [Unknown]

NARRATIVE: CASE EVENT DATE: 20240101
